FAERS Safety Report 20532654 (Version 1)
Quarter: 2022Q1

REPORT INFORMATION
  Report Type: Spontaneous
  Country: US (occurrence: None)
  Receive Date: 20220301
  Receipt Date: 20220301
  Transmission Date: 20220423
  Serious: Yes (Hospitalization)
  Sender: FDA-Public Use
  Company Number: None

PATIENT
  Sex: Female

DRUGS (5)
  1. DIMETHYL FUMARATE [Suspect]
     Active Substance: DIMETHYL FUMARATE
     Indication: Multiple sclerosis
     Dosage: FREQUENCY : TWICE A DAY;?
     Route: 048
     Dates: start: 20210909
  2. HYDROCHLOROT CAP 12.5MG [Concomitant]
  3. LISINOPRIL [Concomitant]
     Active Substance: LISINOPRIL
  4. VITAMIN C TAB 500MG [Concomitant]
  5. VITAMIN 03 CAP 25MCG [Concomitant]

REACTIONS (3)
  - Hypoaesthesia oral [None]
  - Hypoaesthesia [None]
  - Fatigue [None]
